FAERS Safety Report 7662176-2 (Version None)
Quarter: 2011Q3

REPORT INFORMATION
  Report Type: 
  Country: None (occurrence: None)
  Receive Date: 20110805
  Receipt Date: 20101202
  Transmission Date: 20111222
  Serious: No
  Sender: FDA-Public Use
  Company Number: US-ABBOTT-10P-163-0689598-00

PATIENT
  Sex: Female
  Weight: 74.91 kg

DRUGS (8)
  1. CINAMMON [Concomitant]
     Indication: BLOOD CHOLESTEROL
  2. FLAXSEED OIL [Concomitant]
     Indication: BLOOD CHOLESTEROL
  3. CALCIUM WITH VITAMIN D [Concomitant]
     Indication: BONE LOSS
  4. NIASPAN [Suspect]
     Indication: BLOOD CHOLESTEROL INCREASED
     Dates: start: 20101129
  5. BONIVA [Concomitant]
     Indication: BONE LOSS
  6. COQ10 [Concomitant]
     Indication: BLOOD CHOLESTEROL
  7. LECHITIN [Concomitant]
     Indication: BLOOD CHOLESTEROL
  8. PRILOSEC [Concomitant]
     Indication: DYSPEPSIA

REACTIONS (3)
  - SWELLING FACE [None]
  - FLUSHING [None]
  - BURNING SENSATION [None]
